FAERS Safety Report 6424474-X (Version None)
Quarter: 2009Q4

REPORT INFORMATION
  Report Type: 
  Country: None (occurrence: None)
  Receive Date: 20091103
  Receipt Date: 20091023
  Transmission Date: 20100525
  Serious: Yes (Hospitalization)
  Sender: FDA-Public Use
  Company Number: FR-ROCHE-664162

PATIENT
  Sex: Female
  Weight: 2.2 kg

DRUGS (2)
  1. RIVOTRIL [Suspect]
     Indication: DRUG USE FOR UNKNOWN INDICATION
     Dosage: STRENGTH: 2.5 MG/ML
     Route: 064
     Dates: start: 20080801, end: 20090420
  2. SEROPRAM [Suspect]
     Indication: DRUG USE FOR UNKNOWN INDICATION
     Route: 064
     Dates: start: 20080801, end: 20090420

REACTIONS (2)
  - FEEDING DISORDER NEONATAL [None]
  - PREMATURE BABY [None]
